FAERS Safety Report 8139525-4 (Version None)
Quarter: 2012Q1

REPORT INFORMATION
  Report Type: 
  Country: None (occurrence: None)
  Receive Date: 20120215
  Receipt Date: 20120206
  Transmission Date: 20120608
  Serious: Yes (Other)
  Sender: FDA-Public Use
  Company Number: DE-BRISTOL-MYERS SQUIBB COMPANY-16349680

PATIENT
  Age: 42 Year
  Sex: Male
  Weight: 87 kg

DRUGS (6)
  1. VINCRISTINE [Suspect]
     Indication: ACUTE LYMPHOCYTIC LEUKAEMIA
     Route: 042
     Dates: start: 20111226
  2. DASATINIB [Suspect]
     Indication: ACUTE LYMPHOCYTIC LEUKAEMIA
     Dosage: INTERRUPTED:12JAN12 TO 17JAN12.
  3. CYCLOPHOSPHAMIDE [Suspect]
     Indication: ACUTE LYMPHOCYTIC LEUKAEMIA
     Dosage: ALSO TAKEN ON 25JAN12
     Route: 042
     Dates: start: 20120101
  4. PURINETHOL [Suspect]
     Indication: ACUTE LYMPHOCYTIC LEUKAEMIA
     Route: 048
     Dates: start: 20120107, end: 20120109
  5. PEGASPARGASE [Suspect]
     Indication: ACUTE LYMPHOCYTIC LEUKAEMIA
     Dosage: 1DF= 4000U
     Route: 042
     Dates: start: 20111226
  6. METHOTREXATE [Suspect]
     Indication: ACUTE LYMPHOCYTIC LEUKAEMIA
     Dosage: ALSO ON 10JAN12,18JAN12
     Route: 039
     Dates: start: 20120103

REACTIONS (2)
  - CHOLESTASIS [None]
  - HYPERBILIRUBINAEMIA [None]
